FAERS Safety Report 9788934 (Version 1)
Quarter: 2013Q4

REPORT INFORMATION
  Report Type: Spontaneous
  Country: DE (occurrence: DE)
  Receive Date: 20131230
  Receipt Date: 20131230
  Transmission Date: 20140711
  Serious: Yes (Hospitalization)
  Sender: FDA-Public Use
  Company Number: DE-GLAXOSMITHKLINE-D0081691A

PATIENT
  Age: 73 Year
  Sex: Female

DRUGS (1)
  1. PAROXETIN [Suspect]
     Indication: DEPRESSION
     Route: 048
     Dates: start: 201109, end: 20131022

REACTIONS (6)
  - Somatoform disorder [Recovering/Resolving]
  - Drug withdrawal syndrome [Recovering/Resolving]
  - Nausea [Recovering/Resolving]
  - Dizziness [Recovering/Resolving]
  - Vomiting [Recovering/Resolving]
  - Weight decreased [Recovered/Resolved]
